FAERS Safety Report 10187619 (Version 1)
Quarter: 2014Q2

REPORT INFORMATION
  Report Type: Spontaneous
  Country: US (occurrence: US)
  Receive Date: 20140522
  Receipt Date: 20140522
  Transmission Date: 20141212
  Serious: No
  Sender: FDA-Public Use
  Company Number: US-SANOFI-AVENTIS-2013SA082643

PATIENT
  Age: 71 Year
  Sex: Male

DRUGS (3)
  1. LANTUS SOLOSTAR [Suspect]
     Indication: DIABETES MELLITUS
     Dosage: TAKEN FROM: WHEN THEY CAME OUT?DOSAGE:14U AM 9U PM
     Route: 065
  2. SOLOSTAR [Concomitant]
  3. HUMALOG [Suspect]
     Route: 065

REACTIONS (4)
  - Visual acuity reduced [Unknown]
  - Blood glucose increased [Unknown]
  - Drug ineffective [Unknown]
  - Incorrect product storage [Unknown]
